FAERS Safety Report 9834148 (Version 1)
Quarter: 2014Q1

REPORT INFORMATION
  Report Type: Spontaneous
  Country: US (occurrence: US)
  Receive Date: 20140122
  Receipt Date: 20140122
  Transmission Date: 20141002
  Serious: Yes (Other)
  Sender: FDA-Public Use
  Company Number: US-SA-2014SA007764

PATIENT
  Age: 77 Year
  Sex: Male
  Weight: 86.18 kg

DRUGS (4)
  1. PLAVIX [Suspect]
     Route: 065
     Dates: end: 201311
  2. ELIQUIS [Suspect]
     Dosage: STARTED ON 13-NOV-2013 OR ON 14-NOV-2013
     Route: 065
  3. SIMVASTATIN [Concomitant]
  4. STOOL SOFTENER [Concomitant]
     Indication: FAECES HARD

REACTIONS (4)
  - Transient ischaemic attack [Unknown]
  - Skin cancer [Unknown]
  - Dizziness [Recovering/Resolving]
  - Body height decreased [Unknown]
